FAERS Safety Report 5541066-5 (Version None)
Quarter: 2007Q4

REPORT INFORMATION
  Report Type: 
  Country: None (occurrence: None)
  Receive Date: 20071209
  Receipt Date: 20061227
  Transmission Date: 20080405
  Serious: No
  Sender: FDA-Public Use
  Company Number: US-AMGEN-KDL205006

PATIENT
  Sex: Female

DRUGS (2)
  1. ENBREL [Suspect]
     Indication: RHEUMATOID ARTHRITIS
     Route: 058
     Dates: start: 20060315
  2. METHOTREXATE [Concomitant]
     Route: 065

REACTIONS (4)
  - DIARRHOEA [None]
  - INFLUENZA [None]
  - SINUSITIS [None]
  - VOMITING [None]
